FAERS Safety Report 10978285 (Version 5)
Quarter: 2015Q3

REPORT INFORMATION
  Report Type: Report from Study
  Country: US (occurrence: US)
  Receive Date: 20150402
  Receipt Date: 20150811
  Transmission Date: 20151125
  Serious: Yes (Hospitalization, Other)
  Sender: FDA-Public Use
  Company Number: US-GILEAD-2015-0146251

PATIENT
  Age: 58 Year
  Sex: Female

DRUGS (3)
  1. TYVASO [Concomitant]
     Active Substance: TREPROSTINIL
  2. AMBRISENTAN [Suspect]
     Active Substance: AMBRISENTAN
     Indication: PRODUCT USED FOR UNKNOWN INDICATION
     Dosage: 5 MG, QD
     Route: 065
     Dates: start: 20150303, end: 201503
  3. ADCIRCA [Concomitant]
     Active Substance: TADALAFIL

REACTIONS (7)
  - Bone graft [Unknown]
  - Dry throat [Unknown]
  - Dry mouth [Unknown]
  - Dizziness [Unknown]
  - Headache [Unknown]
  - Oropharyngeal pain [Unknown]
  - Vascular operation [Unknown]

NARRATIVE: CASE EVENT DATE: 20150323
